FAERS Safety Report 18861100 (Version 7)
Quarter: 2021Q3

REPORT INFORMATION
  Report Type: Report from Study
  Country: US (occurrence: US)
  Receive Date: 20210208
  Receipt Date: 20210704
  Transmission Date: 20211014
  Serious: No
  Sender: FDA-Public Use
  Company Number: NVSC2021US022218

PATIENT
  Sex: Female

DRUGS (1)
  1. KESIMPTA [Suspect]
     Active Substance: OFATUMUMAB
     Indication: PRODUCT USED FOR UNKNOWN INDICATION
     Dosage: UNK
     Route: 065

REACTIONS (14)
  - Migraine [Unknown]
  - Memory impairment [Unknown]
  - Nasopharyngitis [Unknown]
  - Contusion [Unknown]
  - Product dose omission issue [Unknown]
  - Influenza like illness [Unknown]
  - Headache [Unknown]
  - Fatigue [Unknown]
  - Chills [Unknown]
  - Night blindness [Unknown]
  - Pain in extremity [Unknown]
  - Pain [Unknown]
  - Visual impairment [Unknown]
  - Depressed mood [Unknown]
